FAERS Safety Report 7011005-9 (Version None)
Quarter: 2010Q3

REPORT INFORMATION
  Report Type: 
  Country: None (occurrence: None)
  Receive Date: 20100922
  Receipt Date: 20100922
  Transmission Date: 20110219
  Serious: Yes (Other)
  Sender: FDA-Public Use
  Company Number: None

PATIENT
  Age: 63 Year
  Sex: Female
  Weight: 60.3284 kg

DRUGS (1)
  1. AGGRENOX [Suspect]
     Indication: CEREBROVASCULAR ACCIDENT
     Dosage: 1  2 PO
     Route: 048
     Dates: start: 20100915, end: 20100916

REACTIONS (3)
  - HEADACHE [None]
  - HYPERHIDROSIS [None]
  - NAUSEA [None]
